FAERS Safety Report 9411383 (Version 1)
Quarter: 2013Q3

REPORT INFORMATION
  Report Type: Spontaneous
  Country: JP (occurrence: JP)
  Receive Date: 20130722
  Receipt Date: 20130722
  Transmission Date: 20140515
  Serious: Yes (Death, Other)
  Sender: FDA-Public Use
  Company Number: PHHY2013JP076535

PATIENT
  Age: 79 Year
  Sex: Male

DRUGS (4)
  1. PREDNISOLONE [Suspect]
     Indication: DRUG REACTION WITH EOSINOPHILIA AND SYSTEMIC SYMPTOMS
     Dosage: 50 MG, QD
     Route: 048
  2. PREDNISOLONE [Suspect]
     Dosage: 40 MG, QD
     Route: 048
  3. PREDNISOLONE [Suspect]
     Dosage: 25 MG, QD
     Route: 048
  4. PREDNISOLONE [Suspect]
     Dosage: 25 MG, QD
     Route: 048

REACTIONS (3)
  - Acute respiratory distress syndrome [Fatal]
  - Cholangitis acute [Unknown]
  - Pneumocystis jirovecii pneumonia [Unknown]
